FAERS Safety Report 11159233 (Version 1)
Quarter: 2015Q2

REPORT INFORMATION
  Report Type: Not Available
  Country: GB (occurrence: GB)
  Receive Date: 20150603
  Receipt Date: 20150603
  Transmission Date: 20150821
  Serious: Yes (Hospitalization)
  Sender: FDA-Public Use
  Company Number: GB-MUNDIPHARMA DS AND PHARMACOVIGILANCE-GBR-2015-0028410

PATIENT
  Age: 48 Year
  Sex: Female
  Weight: 80.73 kg

DRUGS (15)
  1. OXYNORM [Suspect]
     Active Substance: OXYCODONE HYDROCHLORIDE
     Indication: POSTOPERATIVE ANALGESIA
     Dosage: 10 MG, UNK
     Route: 048
     Dates: start: 20141111, end: 20141130
  2. HYPROMELLOSE [Concomitant]
     Active Substance: HYPROMELLOSES
  3. LORATADINE. [Concomitant]
     Active Substance: LORATADINE
  4. QUETIAPINE [Concomitant]
     Active Substance: QUETIAPINE
  5. RANITIDINE [Concomitant]
     Active Substance: RANITIDINE\RANITIDINE HYDROCHLORIDE
  6. SALBUTAMOL [Concomitant]
     Active Substance: ALBUTEROL
  7. SERETIDE [Concomitant]
     Active Substance: FLUTICASONE FUROATE\SALMETEROL XINAFOATE
  8. VENLAFAXINE [Concomitant]
     Active Substance: VENLAFAXINE HYDROCHLORIDE
  9. VITAMIN D                          /00107901/ [Concomitant]
     Active Substance: ERGOCALCIFEROL
  10. ZOPICLONE [Concomitant]
     Active Substance: ZOPICLONE
  11. FUROSEMIDE. [Concomitant]
     Active Substance: FUROSEMIDE
  12. CLONAZEPAM. [Concomitant]
     Active Substance: CLONAZEPAM
  13. COCODAMOL [Concomitant]
     Active Substance: ACETAMINOPHEN\CODEINE PHOSPHATE
     Indication: ARTHRITIS
  14. NASONEX [Concomitant]
     Active Substance: MOMETASONE FUROATE
  15. VALPROIC ACID. [Concomitant]
     Active Substance: VALPROIC ACID

REACTIONS (2)
  - Epilepsy [Recovered/Resolved]
  - Asthma [Recovered/Resolved]

NARRATIVE: CASE EVENT DATE: 20141111
